FAERS Safety Report 10418940 (Version 1)
Quarter: 2014Q2

REPORT INFORMATION
  Report Type: Spontaneous
  Country: US (occurrence: None)
  Receive Date: 20140625
  Receipt Date: 20140625
  Transmission Date: 20141212
  Serious: Yes (Hospitalization)
  Sender: FDA-Public Use
  Company Number: A-NJ2014-95716

PATIENT
  Age: 78 Year
  Sex: Female

DRUGS (5)
  1. OPSUMIT (MACITENTAN) [Suspect]
     Indication: PULMONARY ARTERIAL HYPERTENSION
     Route: 048
     Dates: start: 20131203
  2. WARFARIN (WARFARIN SODIUM) [Concomitant]
  3. ADCIRCA (TADALFINAL) [Concomitant]
  4. DEMADEX (TORSAMIDE) [Concomitant]
  5. OXYGEN [Concomitant]

REACTIONS (2)
  - Right ventricular failure [None]
  - Fluid overload [None]
